FAERS Safety Report 8141289-5 (Version None)
Quarter: 2012Q1

REPORT INFORMATION
  Report Type: 
  Country: None (occurrence: None)
  Receive Date: 20120103
  Receipt Date: 20110919
  Transmission Date: 20120608
  Serious: No
  Sender: FDA-Public Use
  Company Number: AE-2011-001665

PATIENT
  Age: 52 Year
  Sex: Male
  Weight: 88.905 kg

DRUGS (5)
  1. RIBASPHERE [Concomitant]
  2. HYZAAR [Concomitant]
  3. INCIVEK [Suspect]
     Dosage: 2250 MG (750 MG, 3 IN 1 D), ORAL
     Route: 048
     Dates: start: 20110827
  4. PEGASYS [Concomitant]
  5. AMLODIPINE [Concomitant]

REACTIONS (5)
  - FAECES HARD [None]
  - ANAL INFLAMMATION [None]
  - ANAL PRURITUS [None]
  - RASH [None]
  - FATIGUE [None]
